FAERS Safety Report 5809690-X (Version None)
Quarter: 2008Q3

REPORT INFORMATION
  Report Type: 
  Country: None (occurrence: None)
  Receive Date: 20080709
  Receipt Date: 20080626
  Transmission Date: 20090109
  Serious: Yes (Hospitalization)
  Sender: FDA-Public Use
  Company Number: 2008AL007806

PATIENT
  Age: 58 Year
  Sex: Male

DRUGS (6)
  1. NAPROXEN [Suspect]
     Indication: OSTEOARTHRITIS
     Dosage: 500 MG; TID; PO
     Route: 048
     Dates: start: 20070915, end: 20070919
  2. ACETYLSALICYLIC ACID SRT [Concomitant]
  3. AMLODIPINE [Concomitant]
  4. ATORVASTATIN CALCIUM [Concomitant]
  5. BISOPROLOL FUMARATE [Concomitant]
  6. LISINOPRIL AND HYDROCHLOROTHIAZIDE [Concomitant]

REACTIONS (2)
  - GASTRIC HAEMORRHAGE [None]
  - HELICOBACTER PYLORI IDENTIFICATION TEST POSITIVE [None]
